FAERS Safety Report 25122951 (Version 5)
Quarter: 2025Q2

REPORT INFORMATION
  Report Type: Spontaneous
  Country: US (occurrence: US)
  Receive Date: 20250326
  Receipt Date: 20250614
  Transmission Date: 20250717
  Serious: No
  Sender: BRISTOL-MYERS SQUIBB COMPANY
  Company Number: US-BRISTOL-MYERS SQUIBB COMPANY-2025-044203

PATIENT
  Age: 77 Year
  Sex: Female

DRUGS (3)
  1. LENALIDOMIDE [Suspect]
     Active Substance: LENALIDOMIDE
     Indication: Plasma cell myeloma
     Route: 048
     Dates: start: 20250313
  2. LENALIDOMIDE [Suspect]
     Active Substance: LENALIDOMIDE
     Dosage: TAKE 1 CAPSULE (25 MG) BY MOUTH DAILY ON DAYS 1-21 OF THE 28 DAY CYCLE OF CHEMOTHERAPY
     Route: 048
     Dates: start: 20250313
  3. LENALIDOMIDE [Suspect]
     Active Substance: LENALIDOMIDE
     Route: 048

REACTIONS (4)
  - Product dose omission issue [Unknown]
  - Off label use [Unknown]
  - Full blood count abnormal [Recovered/Resolved]
  - Product administration interrupted [Unknown]
